FAERS Safety Report 6092315-9 (Version None)
Quarter: 2009Q1

REPORT INFORMATION
  Report Type: 
  Country: None (occurrence: None)
  Receive Date: 20090225
  Receipt Date: 20090219
  Transmission Date: 20090719
  Serious: Yes (Other)
  Sender: FDA-Public Use
  Company Number: B0561469B

PATIENT
  Sex: Male

DRUGS (3)
  1. LAMICTAL [Suspect]
     Dates: end: 20081031
  2. CYMBALTA [Suspect]
  3. REMERON [Suspect]
     Dates: end: 20081207

REACTIONS (6)
  - DRUG EXPOSURE DURING PREGNANCY [None]
  - DRUG WITHDRAWAL SYNDROME NEONATAL [None]
  - NEONATAL HYPOTENSION [None]
  - NEONATAL RESPIRATORY ARREST [None]
  - NEONATAL TACHYPNOEA [None]
  - TREMOR NEONATAL [None]
